FAERS Safety Report 6462159-4 (Version None)
Quarter: 2009Q4

REPORT INFORMATION
  Report Type: 
  Country: None (occurrence: None)
  Receive Date: 20091130
  Receipt Date: 20091126
  Transmission Date: 20100525
  Serious: Yes (Death, Hospitalization)
  Sender: FDA-Public Use
  Company Number: EE-BAYER-200940569GPV

PATIENT
  Age: 13 Year
  Sex: Male

DRUGS (2)
  1. ASPIRIN [Suspect]
     Indication: DRUG USE FOR UNKNOWN INDICATION
     Route: 048
  2. TRIPLE VACCINE (MUMPS, MEASLES, SCARLET) [Concomitant]
     Dates: start: 20091119, end: 20091119

REACTIONS (3)
  - BACTERIAL INFECTION [None]
  - PNEUMONIA [None]
  - PULMONARY HAEMORRHAGE [None]
